FAERS Safety Report 18626594 (Version 2)
Quarter: 2020Q4

REPORT INFORMATION
  Report Type: Spontaneous
  Country: US (occurrence: US)
  Receive Date: 20201217
  Receipt Date: 20201222
  Transmission Date: 20210114
  Serious: Yes (Death)
  Sender: FDA-Public Use
  Company Number: US-BIOVITRUM-2020US7557

PATIENT
  Sex: Female

DRUGS (2)
  1. SYNAGIS [Suspect]
     Active Substance: PALIVIZUMAB
     Indication: LARYNGOMALACIA
  2. SYNAGIS [Suspect]
     Active Substance: PALIVIZUMAB
     Indication: BENIGN CONGENITAL HYPOTONIA
     Route: 030

REACTIONS (2)
  - Death [Fatal]
  - Off label use [Unknown]
